FAERS Safety Report 7864616-2 (Version None)
Quarter: 2011Q4

REPORT INFORMATION
  Report Type: 
  Country: None (occurrence: None)
  Receive Date: 20111025
  Receipt Date: 20111010
  Transmission Date: 20120403
  Serious: Yes (Other)
  Sender: FDA-Public Use
  Company Number: FR-ACCORD-011056

PATIENT
  Age: 26 Year
  Sex: Female

DRUGS (1)
  1. TOPIRAMATE [Suspect]
     Indication: BORDERLINE PERSONALITY DISORDER
     Dosage: 200.00-MG-1.0DAYS
     Dates: start: 20090301

REACTIONS (6)
  - INTENTIONAL SELF-INJURY [None]
  - LACERATION [None]
  - MOOD SWINGS [None]
  - ANOREXIA NERVOSA [None]
  - WEIGHT DECREASED [None]
  - SELF-INDUCED VOMITING [None]
